FAERS Safety Report 6260080-8 (Version None)
Quarter: 2009Q3

REPORT INFORMATION
  Report Type: 
  Country: None (occurrence: None)
  Receive Date: 20090706
  Receipt Date: 20090701
  Transmission Date: 20100115
  Serious: Yes (Other)
  Sender: FDA-Public Use
  Company Number: 2009SP004814

PATIENT
  Age: 49 Year
  Sex: Female

DRUGS (5)
  1. CLARITIN REDITABS [Suspect]
     Indication: URTICARIA
     Dosage: 10 MG; ; PO, 10 MG; QD; PO
     Route: 048
     Dates: start: 20090219, end: 20090223
  2. CLARITIN REDITABS [Suspect]
     Indication: URTICARIA
     Dosage: 10 MG; ; PO, 10 MG; QD; PO
     Route: 048
     Dates: start: 20090130
  3. CINAL [Concomitant]
  4. TRANSAMIN [Concomitant]
  5. ORTHO-NOVUM 1/35-21 [Concomitant]

REACTIONS (8)
  - BLISTER [None]
  - DRUG ERUPTION [None]
  - ERYTHEMA [None]
  - GENERALISED ERYTHEMA [None]
  - PAIN [None]
  - PRURITUS [None]
  - SCAB [None]
  - TOXIC SKIN ERUPTION [None]
